FAERS Safety Report 24296216 (Version 8)
Quarter: 2025Q2

REPORT INFORMATION
  Report Type: Report from Study
  Country: US (occurrence: US)
  Receive Date: 20240909
  Receipt Date: 20250617
  Transmission Date: 20250717
  Serious: Yes (Hospitalization, Other)
  Sender: TAKEDA
  Company Number: US-TAKEDA-2024TUS076036

PATIENT
  Sex: Female
  Weight: 86 kg

DRUGS (24)
  1. HUMAN IMMUNOGLOBULIN G [Suspect]
     Active Substance: HUMAN IMMUNOGLOBULIN G
     Indication: IgG deficiency
     Dosage: 18 GRAM, Q2WEEKS
     Dates: start: 20240710
  2. HUMAN IMMUNOGLOBULIN G [Suspect]
     Active Substance: HUMAN IMMUNOGLOBULIN G
     Dosage: 18 GRAM, Q2WEEKS
  3. LEVOCETIRIZINE DIHYDROCHLORIDE [Concomitant]
     Active Substance: LEVOCETIRIZINE DIHYDROCHLORIDE
  4. VITAMIN D NOS [Concomitant]
     Active Substance: CHOLECALCIFEROL\ERGOCALCIFEROL
  5. HUMALOG [Concomitant]
     Active Substance: INSULIN LISPRO
  6. OMEPRAZOLE [Concomitant]
     Active Substance: OMEPRAZOLE
  7. LANTUS SOLOSTAR [Concomitant]
     Active Substance: INSULIN GLARGINE
  8. GLIPIZIDE [Concomitant]
     Active Substance: GLIPIZIDE
  9. PAXIL [Concomitant]
     Active Substance: PAROXETINE HYDROCHLORIDE
  10. LISINOPRIL [Concomitant]
     Active Substance: LISINOPRIL
  11. FENOFIBRATE [Concomitant]
     Active Substance: FENOFIBRATE
  12. VASCEPA [Concomitant]
     Active Substance: ICOSAPENT ETHYL
  13. OXYCODONE HYDROCHLORIDE [Concomitant]
     Active Substance: OXYCODONE HYDROCHLORIDE
  14. METFORMIN [Concomitant]
     Active Substance: METFORMIN HYDROCHLORIDE
  15. WELLBUTRIN SR [Concomitant]
     Active Substance: BUPROPION HYDROCHLORIDE
  16. LETROZOLE [Concomitant]
     Active Substance: LETROZOLE
  17. CLENPIQ [Concomitant]
     Active Substance: ANHYDROUS CITRIC ACID\MAGNESIUM OXIDE\SODIUM PICOSULFATE
  18. IBUPROFEN [Concomitant]
     Active Substance: IBUPROFEN
  19. FLUCONAZOLE [Concomitant]
     Active Substance: FLUCONAZOLE
  20. AMOXICILLIN\CLAVULANATE POTASSIUM [Concomitant]
     Active Substance: AMOXICILLIN\CLAVULANATE POTASSIUM
  21. ACETAMINOPHEN [Concomitant]
     Active Substance: ACETAMINOPHEN
  22. EPINEPHRINE [Concomitant]
     Active Substance: EPINEPHRINE
  23. LIDOCAINE [Concomitant]
     Active Substance: LIDOCAINE
  24. DIPHENHYDRAMINE HYDROCHLORIDE [Concomitant]
     Active Substance: DIPHENHYDRAMINE HYDROCHLORIDE

REACTIONS (11)
  - Breast cancer [Unknown]
  - Pneumonia [Unknown]
  - Ear infection [Unknown]
  - Pulmonary mass [Unknown]
  - Implant site infection [Unknown]
  - Weight decreased [Unknown]
  - Product dose omission issue [Unknown]
  - Sinusitis [Recovered/Resolved]
  - Influenza [Unknown]
  - Conjunctivitis [Unknown]
  - Pruritus [Unknown]
